FAERS Safety Report 7763154-5 (Version None)
Quarter: 2011Q3

REPORT INFORMATION
  Report Type: 
  Country: None (occurrence: None)
  Receive Date: 20110920
  Receipt Date: 20110912
  Transmission Date: 20111222
  Serious: Yes (Other)
  Sender: FDA-Public Use
  Company Number: PHHY2011US53670

PATIENT
  Sex: Female

DRUGS (8)
  1. DIOVAN [Concomitant]
     Dosage: 1 DF,DAILY
     Route: 048
  2. GILENYA [Suspect]
     Indication: MULTIPLE SCLEROSIS
     Dosage: 0.5 MG, QD
     Route: 048
     Dates: start: 20110118, end: 20110501
  3. FLEXERIL [Concomitant]
     Indication: MUSCLE SPASMS
     Dosage: UNK UKN, TID
     Route: 048
  4. VYTORIN [Concomitant]
     Dosage: 1 DF, DAILY
     Route: 048
  5. COZAAR [Concomitant]
     Indication: HYPERTENSION
     Dosage: 1 DF, DAILY
     Route: 048
  6. NEXIUM [Concomitant]
     Indication: GASTROOESOPHAGEAL REFLUX DISEASE
     Dosage: 1 DF, DAILY
     Route: 048
  7. LEXAPRO [Concomitant]
     Indication: DEPRESSION
     Dosage: 1 DF, DAILY
     Route: 048
  8. GILENYA [Suspect]
     Dosage: 0.5 MG, DAILY
     Route: 048
     Dates: start: 20110619

REACTIONS (4)
  - TACHYCARDIA [None]
  - CARDIAC DISORDER [None]
  - PALPITATIONS [None]
  - BACK PAIN [None]
